FAERS Safety Report 5325590-6 (Version None)
Quarter: 2007Q2

REPORT INFORMATION
  Report Type: 
  Country: None (occurrence: None)
  Receive Date: 20070515
  Receipt Date: 20070502
  Transmission Date: 20071010
  Serious: Yes (Other)
  Sender: FDA-Public Use
  Company Number: US-ELI_LILLY_AND_COMPANY-US200705000495

PATIENT
  Sex: Female

DRUGS (5)
  1. CYMBALTA [Suspect]
     Indication: NEURALGIA
     Dosage: 60 MG, DAILY (1/D)
     Route: 048
     Dates: start: 20041101, end: 20070401
  2. GLUCOPHAGE [Concomitant]
  3. ACTOS [Concomitant]
  4. LISINOPRIL [Concomitant]
  5. LESCOL [Concomitant]

REACTIONS (5)
  - DISABILITY [None]
  - JOINT INJURY [None]
  - NECK INJURY [None]
  - ROAD TRAFFIC ACCIDENT [None]
  - TINNITUS [None]
